FAERS Safety Report 5841325-2 (Version None)
Quarter: 2008Q3

REPORT INFORMATION
  Report Type: 
  Country: None (occurrence: None)
  Receive Date: 20080812
  Receipt Date: 20080801
  Transmission Date: 20090109
  Serious: Yes (Other)
  Sender: FDA-Public Use
  Company Number: US-JNJFOC-20080305463

PATIENT
  Sex: Female
  Weight: 54.43 kg

DRUGS (7)
  1. REMICADE [Suspect]
     Route: 042
  2. REMICADE [Suspect]
     Indication: RHEUMATOID ARTHRITIS
     Route: 042
  3. METHOTREXATE [Concomitant]
  4. MEDROL [Concomitant]
  5. PRINIVIL [Concomitant]
  6. LASIX [Concomitant]
  7. FOSAMAX [Concomitant]

REACTIONS (4)
  - CELLULITIS [None]
  - HERPES OPHTHALMIC [None]
  - TENDON RUPTURE [None]
  - UPPER EXTREMITY MASS [None]
